FAERS Safety Report 7077515 (Version 2)
Quarter: 2014Q1

REPORT INFORMATION
  Report Type: Spontaneous
  Country: US (occurrence: None)
  Receive Date: 20090803
  Receipt Date: 20140224
  Transmission Date: 20141002
  Serious: Yes (Hospitalization)
  Sender: FDA-Public Use
  Company Number: 2009S1005103

PATIENT
  Age: 64 Year
  Sex: Female
  Weight: 70.49 kg

DRUGS (10)
  1. FLEET PHOSPHO-SODA [Suspect]
     Indication: COLONOSCOPY
     Dosage: 2 IN 24 HOURS
     Route: 048
     Dates: start: 200605, end: 20060519
  2. ENALAPRIL [Concomitant]
  3. HYDROCODONE [Concomitant]
  4. GABAPENTIN [Concomitant]
  5. NORVASC (AMLODIPINE BESILATE) [Concomitant]
  6. ARAVA (LEFLUNOMIDE) [Concomitant]
  7. LIPITOR (ATORVASTATIN CALCIUM) [Concomitant]
  8. NABUMETONE (RELAFEN) [Concomitant]
  9. LANTUS (INSULIN GLARGINE) [Concomitant]
  10. TRAMADOL [Concomitant]

REACTIONS (9)
  - Renal failure [None]
  - Dialysis [None]
  - Diarrhoea [None]
  - Renal failure acute [None]
  - Renal tubular necrosis [None]
  - Anaemia [None]
  - Dizziness [None]
  - Decreased appetite [None]
  - Vomiting [None]
